FAERS Safety Report 17277323 (Version 1)
Quarter: 2020Q1

REPORT INFORMATION
  Report Type: Spontaneous
  Country: US (occurrence: US)
  Receive Date: 20191226
  Receipt Date: 20191226
  Transmission Date: 20200409
  Serious: No
  Sender: FDA-Public Use
  Company Number: None

PATIENT
  Age: 64 Year
  Sex: Male

DRUGS (2)
  1. GETFORMIN [Concomitant]
  2. CAPECITABINE 500MG TAB [Suspect]
     Active Substance: CAPECITABINE
     Dosage: ?          OTHER FREQUENCY:4TAB BIW EVERY21DAY?
     Route: 048
     Dates: start: 20191203

REACTIONS (1)
  - Therapy cessation [None]
